FAERS Safety Report 21571683 (Version 1)
Quarter: 2022Q4

REPORT INFORMATION
  Report Type: Report from Study
  Country: US (occurrence: US)
  Receive Date: 20221109
  Receipt Date: 20221109
  Transmission Date: 20230113
  Serious: Yes (Hospitalization, Other)
  Sender: FDA-Public Use
  Company Number: US-JNJFOC-20220945509

PATIENT
  Age: 58 Year
  Sex: Male
  Weight: 94.432 kg

DRUGS (3)
  1. SELEXIPAG [Suspect]
     Active Substance: SELEXIPAG
     Indication: Pulmonary arterial hypertension
     Route: 048
     Dates: start: 20220802
  2. SELEXIPAG [Suspect]
     Active Substance: SELEXIPAG
     Route: 048
     Dates: start: 20220801, end: 20220808
  3. ORENITRAM [Concomitant]
     Active Substance: TREPROSTINIL
     Route: 048

REACTIONS (6)
  - Neck pain [Recovered/Resolved]
  - Renal impairment [Unknown]
  - Dyspnoea [Unknown]
  - Swelling [Unknown]
  - Anorectal disorder [Recovered/Resolved]
  - Abdominal pain [Recovered/Resolved]

NARRATIVE: CASE EVENT DATE: 20220803
